FAERS Safety Report 9233651 (Version 4)
Quarter: 2013Q2

REPORT INFORMATION
  Report Type: Spontaneous
  Country: JP (occurrence: JP)
  Receive Date: 20130416
  Receipt Date: 20130507
  Transmission Date: 20140414
  Serious: Yes (Other)
  Sender: FDA-Public Use
  Company Number: PHHY2013JP029498

PATIENT
  Sex: Female

DRUGS (7)
  1. SYMMETREL [Suspect]
     Indication: PARKINSON^S DISEASE
     Dosage: 100 MG, TID
     Route: 048
     Dates: end: 201108
  2. COMTAN [Suspect]
     Indication: PARKINSON^S DISEASE
     Dosage: 300 MG, TID
     Route: 048
     Dates: start: 201108
  3. LEVODOPA-CARBIDOPA [Concomitant]
     Indication: BRADYKINESIA
     Dosage: 100 MG, BID
     Route: 048
  4. LEVODOPA-CARBIDOPA [Concomitant]
     Dosage: 200 MG, BID
     Route: 048
  5. LEVODOPA-CARBIDOPA [Concomitant]
     Dosage: 300 MG, TID
     Route: 048
  6. DONEPEZIL HYDROCHLORIDE [Concomitant]
     Indication: DEMENTIA
     Dosage: 3 MG/DAY
     Route: 048
  7. DONEPEZIL HYDROCHLORIDE [Concomitant]
     Dosage: 5 MG/DAY
     Route: 048
     Dates: start: 201105

REACTIONS (7)
  - Parkinson^s disease [Recovering/Resolving]
  - Tremor [Recovering/Resolving]
  - Musculoskeletal pain [Recovering/Resolving]
  - Decreased appetite [Unknown]
  - Drug ineffective [Unknown]
  - Dehydration [None]
  - Somnolence [None]
